FAERS Safety Report 10633198 (Version 2)
Quarter: 2014Q4

REPORT INFORMATION
  Report Type: Spontaneous
  Country: GB (occurrence: None)
  Receive Date: 20141203
  Receipt Date: 20141231
  Transmission Date: 20150529
  Serious: Yes (Disabling)
  Sender: FDA-Public Use
  Company Number: 2014-20822

PATIENT
  Age: 84 Year
  Sex: Male

DRUGS (1)
  1. EYLEA [Suspect]
     Active Substance: AFLIBERCEPT
     Indication: AGE-RELATED MACULAR DEGENERATION

REACTIONS (3)
  - Atrophy [None]
  - Fibrosis [None]
  - Visual acuity reduced [None]
